FAERS Safety Report 25160361 (Version 1)
Quarter: 2025Q2

REPORT INFORMATION
  Report Type: Report from Study
  Country: CZ (occurrence: CZ)
  Receive Date: 20250404
  Receipt Date: 20250404
  Transmission Date: 20250716
  Serious: Yes (Other)
  Sender: SAMSUNG BIOEPIS
  Company Number: CZ-SAMSUNG BIOEPIS-SB-2025-11666

PATIENT
  Age: 41 Year
  Sex: Male

DRUGS (1)
  1. INFLIXIMAB [Suspect]
     Active Substance: INFLIXIMAB
     Indication: Colitis ulcerative

REACTIONS (8)
  - Autoimmune hepatitis [Recovering/Resolving]
  - Cholangitis sclerosing [Recovering/Resolving]
  - Hepatic fibrosis [Recovering/Resolving]
  - Drug-induced liver injury [Recovering/Resolving]
  - Chronic hepatitis [Recovering/Resolving]
  - Hepatic lesion [Recovering/Resolving]
  - Hepatic mass [Recovering/Resolving]
  - Antimitochondrial antibody positive [Recovering/Resolving]

NARRATIVE: CASE EVENT DATE: 20250115
